FAERS Safety Report 4333809-3 (Version None)
Quarter: 2004Q2

REPORT INFORMATION
  Report Type: 
  Country: None (occurrence: None)
  Receive Date: 20040402
  Receipt Date: 20040324
  Transmission Date: 20050107
  Serious: Yes (Hospitalization, Other)
  Sender: FDA-Public Use
  Company Number: 2003188569US

PATIENT
  Age: 29 Year
  Sex: Female

DRUGS (4)
  1. DOSTINEX [Suspect]
     Indication: HYPERPROLACTINAEMIA
     Dosage: 1 TABLET/WEEK
     Dates: start: 19980101, end: 19980101
  2. DOSTINEX [Suspect]
     Indication: HYPERPROLACTINAEMIA
     Dosage: 1 TABLET/WEEK
     Dates: start: 19990101, end: 19990101
  3. DOSTINEX [Suspect]
     Indication: HYPERPROLACTINAEMIA
     Dosage: 1 TABLET/WEEK
     Dates: end: 20000101
  4. XANAX [Concomitant]

REACTIONS (9)
  - BENIGN UTERINE NEOPLASM [None]
  - CERVICAL DYSPLASIA [None]
  - CERVICITIS [None]
  - ENDOMETRIOSIS [None]
  - FALLOPIAN TUBE CYST [None]
  - METRORRHAGIA [None]
  - OVARIAN CYST [None]
  - PELVIC PERITONEAL ADHESIONS [None]
  - UTERINE ENLARGEMENT [None]
